FAERS Safety Report 4674550-7 (Version None)
Quarter: 2005Q2

REPORT INFORMATION
  Report Type: 
  Country: None (occurrence: None)
  Receive Date: 20050526
  Receipt Date: 20050201
  Transmission Date: 20051028
  Serious: Yes (Other)
  Sender: FDA-Public Use
  Company Number: US-MERCK-0502USA00156

PATIENT
  Age: 42 Year
  Sex: Female

DRUGS (4)
  1. BELLAMINE S [Concomitant]
     Indication: HOT FLUSH
     Route: 065
  2. VIOXX [Suspect]
     Indication: FIBROMYALGIA
     Route: 048
     Dates: start: 20010108, end: 20040930
  3. VIOXX [Suspect]
     Route: 048
     Dates: start: 20010108, end: 20040930
  4. VIOXX [Suspect]
     Route: 048
     Dates: start: 20010108, end: 20040930

REACTIONS (4)
  - CEREBROVASCULAR ACCIDENT [None]
  - EAR DISORDER [None]
  - HYSTERECTOMY [None]
  - UTERINE DISORDER [None]
